FAERS Safety Report 8938268 (Version 1)
Quarter: 2012Q4

REPORT INFORMATION
  Report Type: 
  Country: US (occurrence: US)
  Receive Date: 20121130
  Receipt Date: 20121130
  Transmission Date: 20130627
  Serious: Yes (Other)
  Sender: FDA-Public Use
  Company Number: US-ASTRAZENECA-2012SE88075

PATIENT
  Age: 77 Year
  Sex: Female
  Weight: 71.2 kg

DRUGS (8)
  1. CRESTOR [Suspect]
     Indication: BLOOD CHOLESTEROL INCREASED
     Route: 048
     Dates: start: 2010, end: 201201
  2. CRESTOR [Interacting]
     Indication: BLOOD TRIGLYCERIDES INCREASED
     Route: 048
     Dates: start: 2010, end: 201201
  3. CRESTOR [Interacting]
     Indication: BLOOD CHOLESTEROL INCREASED
     Dosage: Unknown dose and frequency.
     Route: 048
     Dates: start: 2012
  4. CRESTOR [Interacting]
     Indication: BLOOD TRIGLYCERIDES INCREASED
     Dosage: Unknown dose and frequency.
     Route: 048
     Dates: start: 2012
  5. RESTASIS [Interacting]
     Route: 047
     Dates: start: 201209
  6. ATENOLOL [Suspect]
     Indication: PULSE ABNORMAL
     Route: 048
     Dates: start: 2011
  7. FOSAMAX [Concomitant]
     Indication: OSTEOPOROSIS
     Route: 048
  8. INDERAL [Concomitant]
     Route: 048

REACTIONS (13)
  - Drug interaction [Unknown]
  - Extrasystoles [Unknown]
  - Cataract [Unknown]
  - Musculoskeletal disorder [Recovering/Resolving]
  - Dry eye [Unknown]
  - Foreign body sensation in eyes [Unknown]
  - Blood cholesterol increased [Unknown]
  - Myalgia [Unknown]
  - Arthralgia [Unknown]
  - Arthralgia [Unknown]
  - Low density lipoprotein increased [Unknown]
  - Blood triglycerides increased [Unknown]
  - Drug dose omission [Unknown]
